FAERS Safety Report 24395860 (Version 3)
Quarter: 2024Q4

REPORT INFORMATION
  Report Type: Spontaneous
  Country: PL (occurrence: PL)
  Receive Date: 20241004
  Receipt Date: 20241225
  Transmission Date: 20250114
  Serious: Yes (Life-Threatening, Hospitalization, Other)
  Sender: DR REDDYS
  Company Number: None

PATIENT
  Age: 60 Year
  Sex: Male

DRUGS (5)
  1. PREGABALIN [Suspect]
     Active Substance: PREGABALIN
     Indication: Suicide attempt
     Route: 048
  2. AMITRIPTYLINE [Suspect]
     Active Substance: AMITRIPTYLINE
     Indication: Suicide attempt
     Route: 048
  3. BUPRENORPHINE [Suspect]
     Active Substance: BUPRENORPHINE
     Indication: Suicide attempt
     Dosage: 35 MICROGRAM/HOUR
     Route: 062
  4. BUPRENORPHINE [Suspect]
     Active Substance: BUPRENORPHINE
     Indication: Analgesic therapy
  5. ETHYLENE GLYCOL [Suspect]
     Active Substance: ETHYLENE GLYCOL
     Indication: Product used for unknown indication
     Route: 065

REACTIONS (10)
  - Pneumonia aspiration [Recovered/Resolved]
  - Cardiopulmonary failure [Recovered/Resolved]
  - Loss of consciousness [Recovered/Resolved]
  - Circulatory collapse [Recovered/Resolved]
  - Pneumonia [Recovered/Resolved]
  - Intentional overdose [Recovered/Resolved]
  - Respiratory failure [Recovered/Resolved]
  - Drug abuse [Unknown]
  - Suicide attempt [Unknown]
  - Cardiac failure [Recovered/Resolved]
